FAERS Safety Report 6821465-1 (Version None)
Quarter: 2010Q3

REPORT INFORMATION
  Report Type: 
  Country: None (occurrence: None)
  Receive Date: 20100707
  Receipt Date: 20090127
  Transmission Date: 20110219
  Serious: No
  Sender: FDA-Public Use
  Company Number: US-PFIZER INC-2008038555

PATIENT
  Sex: Female

DRUGS (2)
  1. ZOLOFT [Suspect]
  2. RELPAX [Suspect]

REACTIONS (3)
  - EPISTAXIS [None]
  - HEADACHE [None]
  - INAPPROPRIATE SCHEDULE OF DRUG ADMINISTRATION [None]
